FAERS Safety Report 5300469-4 (Version None)
Quarter: 2007Q2

REPORT INFORMATION
  Report Type: 
  Country: None (occurrence: None)
  Receive Date: 20070418
  Receipt Date: 20070411
  Transmission Date: 20071010
  Serious: Yes (Hospitalization)
  Sender: FDA-Public Use
  Company Number: GB-GENENTECH-239749

PATIENT
  Sex: Female
  Weight: 56.8 kg

DRUGS (3)
  1. RITUXIMAB [Suspect]
     Indication: VASCULITIS
     Dosage: 562 MG, 1/WEEK
     Route: 042
     Dates: start: 20070308
  2. STEROIDS (UNK INGREDIENTS) [Concomitant]
     Indication: DRUG USE FOR UNKNOWN INDICATION
  3. CYCLOPHOSPHAMIDE [Concomitant]
     Indication: DRUG USE FOR UNKNOWN INDICATION

REACTIONS (2)
  - PNEUMONIA [None]
  - PULMONARY EMBOLISM [None]
